FAERS Safety Report 7946714-8 (Version None)
Quarter: 2011Q4

REPORT INFORMATION
  Report Type: 
  Country: None (occurrence: None)
  Receive Date: 20111129
  Receipt Date: 20111125
  Transmission Date: 20120403
  Serious: No
  Sender: FDA-Public Use
  Company Number: US-PFIZER INC-2011288549

PATIENT
  Sex: Female
  Weight: 69 kg

DRUGS (1)
  1. LYRICA [Suspect]
     Indication: NERVE COMPRESSION
     Dosage: 50 MG, 1X/DAY
     Route: 048
     Dates: start: 20111122

REACTIONS (1)
  - HEART RATE INCREASED [None]
